FAERS Safety Report 7475670-4 (Version None)
Quarter: 2011Q2

REPORT INFORMATION
  Report Type: 
  Country: None (occurrence: None)
  Receive Date: 20110512
  Receipt Date: 20110506
  Transmission Date: 20111010
  Serious: Yes (Hospitalization)
  Sender: FDA-Public Use
  Company Number: AU-ROCHE-688655

PATIENT
  Sex: Male
  Weight: 62.5 kg

DRUGS (20)
  1. ACTEMRA [Suspect]
     Route: 042
     Dates: start: 20080811
  2. METHYLDOPA [Concomitant]
     Dosage: FREQUENCY REPORTED AS DAILY.
     Dates: start: 20100118, end: 20100305
  3. METHYLDOPA [Concomitant]
     Dosage: FREQUENCY REPORTEDAS DAILY.
     Dates: start: 20100309
  4. ACTEMRA [Suspect]
     Dosage: DOSE: 8 MG/KG
     Route: 042
     Dates: start: 20100202, end: 20100407
  5. ACTEMRA [Suspect]
     Indication: RHEUMATOID ARTHRITIS
     Dosage: DRUG TEMPORARILY STOPPED ON 02 JULY 2008
     Route: 042
     Dates: start: 20060814, end: 20080519
  6. ACTEMRA [Suspect]
     Dosage: DOSE: 8 MG/KG
     Route: 042
     Dates: start: 20091103
  7. DICLOFENAC SODIUM [Concomitant]
     Dosage: FREQUENCY REPORTED AS DAILY.
     Route: 048
     Dates: end: 20100305
  8. METHYLDOPA [Concomitant]
     Dosage: FREQUENCY REPORTED AS DAILY.
     Dates: start: 20100118, end: 20100305
  9. ATACAND HCT [Concomitant]
  10. ACTEMRA [Suspect]
     Dosage: DOSE: 8 MG/KG
     Route: 042
     Dates: start: 20091124
  11. ACTEMRA [Suspect]
     Dosage: THE PATIENT WAS PREVIOUSLY ENROLLED IN WA18063
     Route: 042
  12. SULFASALAZINE [Concomitant]
     Dosage: FREQUENCY REPORTED AS DAILY.
     Route: 048
     Dates: start: 20070702
  13. ATACAND HCT [Concomitant]
     Dosage: FREQUENCY REPORTED AS DAILY
  14. AMLODIPINE BESYLATE [Concomitant]
  15. SULFASALAZINE [Concomitant]
     Dosage: FREQUENCY REPORTED AS DAILY.
     Route: 048
     Dates: start: 20060702
  16. DICLOFENAC SODIUM [Concomitant]
     Route: 048
     Dates: start: 20080612
  17. SULFASALAZINE [Concomitant]
     Route: 048
  18. ACTEMRA [Suspect]
     Dosage: DOSE: 8 MG/KG
     Route: 042
     Dates: start: 20091215
  19. OMEPRAZOLE [Concomitant]
  20. ZOLEDRONIC ACID [Concomitant]
     Dosage: TDD REPORTED AS: 4 MGS YRLY.

REACTIONS (3)
  - SINUSITIS FUNGAL [None]
  - STREPTOCOCCAL INFECTION [None]
  - LUMBAR RADICULOPATHY [None]
